FAERS Safety Report 7866614-1 (Version None)
Quarter: 2011Q4

REPORT INFORMATION
  Report Type: 
  Country: None (occurrence: None)
  Receive Date: 20111028
  Receipt Date: 20110708
  Transmission Date: 20120403
  Serious: No
  Sender: FDA-Public Use
  Company Number: US-GLAXOSMITHKLINE-A0936747A

PATIENT
  Sex: Male

DRUGS (1)
  1. ADVAIR DISKUS 100/50 [Suspect]
     Dosage: 1PUFF TWICE PER DAY
     Route: 055

REACTIONS (5)
  - INCREASED UPPER AIRWAY SECRETION [None]
  - COUGH [None]
  - TREATMENT NONCOMPLIANCE [None]
  - DRUG ADMINISTRATION ERROR [None]
  - DYSPHONIA [None]
